FAERS Safety Report 9655672 (Version 1)
Quarter: 2013Q4

REPORT INFORMATION
  Report Type: Spontaneous
  Country: DE (occurrence: DE)
  Receive Date: 20131030
  Receipt Date: 20131030
  Transmission Date: 20140711
  Serious: Yes (Other)
  Sender: FDA-Public Use
  Company Number: DE-BIOGENIDEC-2013BI103353

PATIENT
  Age: 32 Year
  Sex: Female
  Weight: 65 kg

DRUGS (3)
  1. AVONEX [Suspect]
     Indication: MULTIPLE SCLEROSIS
     Route: 030
     Dates: start: 20081031, end: 201004
  2. CORTISONE [Concomitant]
     Indication: GAIT DISTURBANCE
  3. PARACETAMOL [Concomitant]
     Indication: PAIN

REACTIONS (2)
  - Pre-eclampsia [Recovered/Resolved]
  - Twin pregnancy [Recovered/Resolved]
